FAERS Safety Report 4510669-9 (Version None)
Quarter: 2004Q4

REPORT INFORMATION
  Report Type: 
  Country: None (occurrence: None)
  Receive Date: 20041025
  Receipt Date: 20031212
  Transmission Date: 20050328
  Serious: Yes (Hospitalization)
  Sender: FDA-Public Use
  Company Number: NSADSS2002038709

PATIENT
  Age: 58 Year
  Sex: Female

DRUGS (5)
  1. REMICADE [Suspect]
     Indication: RHEUMATOID ARTHRITIS
     Dosage: 5 MG/KG, 1 IN TOTAL, INTRAVENOUS
     Route: 042
     Dates: start: 20001201
  2. PREDNISONE (PREDNISONIE) [Concomitant]
  3. METHOTREXATE [Concomitant]
  4. VALIUM [Concomitant]
  5. LODINE [Concomitant]

REACTIONS (2)
  - CELLULITIS [None]
  - THROMBOCYTOPENIA [None]
